FAERS Safety Report 5662100-8 (Version None)
Quarter: 2008Q1

REPORT INFORMATION
  Report Type: 
  Country: None (occurrence: None)
  Receive Date: 20080212
  Receipt Date: 20070420
  Transmission Date: 20080703
  Serious: Yes (Other)
  Sender: FDA-Public Use
  Company Number: 493959

PATIENT
  Age: 9 Year
  Sex: Female

DRUGS (1)
  1. TAMIFLU [Suspect]
     Indication: INFLUENZA
     Dosage: 60 MG DAILY ORAL
     Route: 048
     Dates: start: 20060415

REACTIONS (2)
  - ANAPHYLACTIC REACTION [None]
  - VOMITING [None]
